FAERS Safety Report 8347829-5 (Version None)
Quarter: 2012Q2

REPORT INFORMATION
  Report Type: 
  Country: None (occurrence: None)
  Receive Date: 20120509
  Receipt Date: 20120502
  Transmission Date: 20120825
  Serious: Yes (Death, Hospitalization)
  Sender: FDA-Public Use
  Company Number: BR-VIIV HEALTHCARE LIMITED-B0783197A

PATIENT
  Sex: Male
  Weight: 73 kg

DRUGS (9)
  1. DOLUTEGRAVIR [Suspect]
     Indication: HIV INFECTION
     Dosage: 50MG TWICE PER DAY
     Route: 065
     Dates: start: 20120202
  2. GANCICLOVIR [Suspect]
     Indication: CYTOMEGALOVIRUS CHORIORETINITIS
     Dosage: 350MG TWICE PER DAY
     Route: 042
     Dates: start: 20120215, end: 20120305
  3. MARAVIROC [Suspect]
     Indication: HIV INFECTION
     Dosage: 150MG TWICE PER DAY
     Route: 048
     Dates: start: 20110101, end: 20120308
  4. TAXOL [Suspect]
     Indication: KAPOSI'S SARCOMA
     Dosage: 90MG WEEKLY
     Route: 042
     Dates: start: 20100901
  5. RITONAVIR [Suspect]
     Indication: HIV INFECTION
     Dosage: 100MG TWICE PER DAY
     Route: 048
     Dates: start: 20000301, end: 20120308
  6. DARUNAVIR HYDRATE [Suspect]
     Indication: HIV INFECTION
     Dosage: 600MG TWICE PER DAY
     Route: 048
     Dates: start: 20090201, end: 20120308
  7. ETRAVIRINE [Suspect]
     Indication: HIV INFECTION
     Dosage: 200MG TWICE PER DAY
     Route: 048
     Dates: start: 20110101, end: 20120308
  8. COMBIVIR [Suspect]
     Indication: HIV INFECTION
     Route: 048
     Dates: start: 20120202
  9. GANCICLOVIR [Suspect]
     Dosage: 350MG PER DAY
     Route: 042
     Dates: start: 20120306, end: 20120306

REACTIONS (2)
  - PULMONARY HAEMORRHAGE [None]
  - CYTOMEGALOVIRUS CHORIORETINITIS [None]
